FAERS Safety Report 8437314-4 (Version None)
Quarter: 2012Q2

REPORT INFORMATION
  Report Type: 
  Country: None (occurrence: None)
  Receive Date: 20120323
  Receipt Date: 20110525
  Transmission Date: 20120825
  Serious: Yes (Hospitalization)
  Sender: FDA-Public Use
  Company Number: 163-21880-11053272

PATIENT
  Age: 63 Year
  Sex: Female

DRUGS (6)
  1. REVLIMID [Suspect]
     Indication: MULTIPLE MYELOMA
     Dosage: 25 MG, 1 IN 1 D, PO;
     Route: 048
     Dates: start: 20110503
  2. CELEXA [Concomitant]
  3. ASPIRIN [Concomitant]
  4. SYNTHROID [Concomitant]
  5. VELCADE [Concomitant]
  6. DEXAMETHASONE [Concomitant]

REACTIONS (1)
  - INFECTION [None]
